FAERS Safety Report 18684499 (Version 1)
Quarter: 2020Q4

REPORT INFORMATION
  Report Type: Spontaneous
  Country: DE (occurrence: DE)
  Receive Date: 20201230
  Receipt Date: 20201230
  Transmission Date: 20210114
  Serious: Yes (Other)
  Sender: FDA-Public Use
  Company Number: DE-ASTRAZENECA-2020SF74834

PATIENT
  Sex: Female

DRUGS (3)
  1. OLAPARIB. [Suspect]
     Active Substance: OLAPARIB
     Route: 048
  2. L-THYROXIN [Concomitant]
     Active Substance: LEVOTHYROXINE SODIUM
     Dosage: 88 MCG FASTING IN THE MORNING
  3. OLAPARIB. [Suspect]
     Active Substance: OLAPARIB
     Route: 048

REACTIONS (7)
  - Heart rate increased [Unknown]
  - Middle insomnia [Unknown]
  - Incorrect dose administered [Unknown]
  - Palpitations [Unknown]
  - Flatulence [Unknown]
  - Myocarditis [Unknown]
  - White blood cell disorder [Unknown]
